FAERS Safety Report 8902880 (Version 1)
Quarter: 2012Q4

REPORT INFORMATION
  Report Type: 
  Country: US (occurrence: US)
  Receive Date: 20121112
  Receipt Date: 20121112
  Transmission Date: 20130627
  Serious: Yes (Other)
  Sender: FDA-Public Use
  Company Number: US-PFIZER INC-2012281563

PATIENT
  Age: 47 Year
  Sex: Female
  Weight: 90.7 kg

DRUGS (6)
  1. LYRICA [Suspect]
     Indication: NERVE DAMAGE
     Dosage: 100 mg, 2x/day
     Dates: start: 2008
  2. LYRICA [Suspect]
     Indication: FIBROMYALGIA
     Dosage: 100 mg, daily
     Dates: start: 201210, end: 20121103
  3. WARFARIN SODIUM [Concomitant]
     Indication: ANTITHROMBIN III DEFICIENCY
     Dosage: 7.5 mg, daily
  4. LORAZEPAM [Concomitant]
     Indication: PANIC ATTACKS
     Dosage: 0.5 mg, 2x/day
  5. LORAZEPAM [Concomitant]
     Indication: ANXIETY
  6. LORAZEPAM [Concomitant]
     Indication: BIPOLAR DISORDER

REACTIONS (2)
  - Pain [Not Recovered/Not Resolved]
  - Intentional drug misuse [Unknown]
